FAERS Safety Report 10029050 (Version 1)
Quarter: 2014Q1

REPORT INFORMATION
  Report Type: Spontaneous
  Country: US (occurrence: US)
  Receive Date: 20140321
  Receipt Date: 20140321
  Transmission Date: 20141002
  Serious: No
  Sender: FDA-Public Use
  Company Number: US-LUNDBECK-DKLU1097750

PATIENT
  Sex: Female

DRUGS (3)
  1. SABRIL (TABLET) [Suspect]
     Indication: COMPLEX PARTIAL SEIZURES
     Dates: start: 20140122
  2. SABRIL (TABLET) [Suspect]
  3. DEPAKOTE [Concomitant]
     Indication: PRODUCT USED FOR UNKNOWN INDICATION

REACTIONS (2)
  - Eye swelling [Unknown]
  - Drug ineffective [Unknown]
